FAERS Safety Report 10164414 (Version 1)
Quarter: 2014Q2

REPORT INFORMATION
  Report Type: Spontaneous
  Country: US (occurrence: US)
  Receive Date: 20140510
  Receipt Date: 20140510
  Transmission Date: 20141212
  Serious: No
  Sender: FDA-Public Use
  Company Number: 2006PV010264

PATIENT
  Age: 70 Year
  Sex: Male
  Weight: 104.33 kg

DRUGS (1)
  1. EXENATIDE PEN DISPOSABLE [Suspect]
     Indication: TYPE 2 DIABETES MELLITUS
     Dosage: JAN06-FEB06?27FEB06-8MAR06?DOSE 5MCG
     Route: 058
     Dates: start: 20060227, end: 20060308

REACTIONS (1)
  - Nausea [Recovered/Resolved]
